FAERS Safety Report 6645583-6 (Version None)
Quarter: 2010Q1

REPORT INFORMATION
  Report Type: 
  Country: None (occurrence: None)
  Receive Date: 20100319
  Receipt Date: 20100319
  Transmission Date: 20100710
  Serious: Yes (Life-Threatening, Hospitalization, Disabling)
  Sender: FDA-Public Use
  Company Number: None

PATIENT
  Sex: Male
  Weight: 100 kg

DRUGS (2)
  1. VANCOMYCIN [Suspect]
     Indication: EVIDENCE BASED TREATMENT
     Dosage: 1.75G Q12HOURS IV
     Route: 042
     Dates: start: 20100222, end: 20100223
  2. VANCOMYCIN [Suspect]
     Indication: INFECTION
     Dosage: 1.75G Q12HOURS IV
     Route: 042
     Dates: start: 20100222, end: 20100223

REACTIONS (1)
  - THROMBOCYTOPENIA [None]
